FAERS Safety Report 9211053 (Version 1)
Quarter: 2013Q2

REPORT INFORMATION
  Report Type: Spontaneous
  Country: DE (occurrence: DE)
  Receive Date: 20130404
  Receipt Date: 20130404
  Transmission Date: 20140414
  Serious: Yes (Other)
  Sender: FDA-Public Use
  Company Number: DE-US-EMD SERONO, INC.-7199670

PATIENT
  Sex: Male
  Weight: 100 kg

DRUGS (7)
  1. REBIF [Suspect]
     Indication: MULTIPLE SCLEROSIS
     Route: 058
     Dates: start: 201104
  2. PANTOPRAZOL (PANTOPRAZOLE) [Concomitant]
     Indication: PRODUCT USED FOR UNKNOWN INDICATION
  3. IBUPROFEN [Concomitant]
     Indication: PRODUCT USED FOR UNKNOWN INDICATION
  4. RAMIGAMMA [Concomitant]
     Indication: BLOOD PRESSURE
  5. RAMILICH [Concomitant]
     Indication: BLOOD PRESSURE
  6. AMLODIPIN (AMLODIPINE) [Concomitant]
     Indication: BLOOD PRESSURE
  7. CARVEDILOL [Concomitant]
     Indication: BLOOD PRESSURE

REACTIONS (4)
  - Queyrat erythroplasia [Not Recovered/Not Resolved]
  - Syphilis [Not Recovered/Not Resolved]
  - Erosive balanitis [Not Recovered/Not Resolved]
  - Penile ulceration [Not Recovered/Not Resolved]
